FAERS Safety Report 6504663-6 (Version None)
Quarter: 2009Q4

REPORT INFORMATION
  Report Type: 
  Country: None (occurrence: None)
  Receive Date: 20091215
  Receipt Date: 20091130
  Transmission Date: 20100525
  Serious: Yes (Hospitalization)
  Sender: FDA-Public Use
  Company Number: 2009-4966

PATIENT
  Age: 75 Year
  Sex: Male
  Weight: 67 kg

DRUGS (3)
  1. APO-GO PFS (APO-GO) (APOMORPHINE HYDROCHLORIDE) (APOMORPHINE HYDROCHLO [Suspect]
     Indication: ON AND OFF PHENOMENON
     Dosage: NOT REPORTED (30 MG, NOT REPORTED)
     Dates: start: 20090416
  2. SIMVASTATIN [Concomitant]
  3. AGGRENOX RETARD 200 (ASASANTIN) [Concomitant]

REACTIONS (2)
  - HYPERTENSION [None]
  - PULMONARY INFARCTION [None]
